FAERS Safety Report 11847485 (Version 1)
Quarter: 2015Q4

REPORT INFORMATION
  Report Type: Spontaneous
  Country: FR (occurrence: FR)
  Receive Date: 20151217
  Receipt Date: 20151217
  Transmission Date: 20160305
  Serious: Yes (Other)
  Sender: FDA-Public Use
  Company Number: FR-NOVOPROD-473437

PATIENT
  Age: 77 Year
  Sex: Male

DRUGS (11)
  1. NOVORAPID [Suspect]
     Active Substance: INSULIN ASPART
     Indication: TYPE 2 DIABETES MELLITUS
     Dosage: UNK
     Route: 058
     Dates: start: 20141114
  2. LOVENOX [Concomitant]
     Active Substance: ENOXAPARIN SODIUM
     Indication: PROPHYLAXIS
     Dosage: UNK
     Route: 058
     Dates: start: 20141106, end: 20141110
  3. HEPARINE SODIUM PANPHARMA [Concomitant]
     Active Substance: HEPARIN SODIUM
     Indication: PROPHYLAXIS
     Dosage: UNK
     Route: 042
     Dates: start: 20141111, end: 20141121
  4. DAFALGAN [Concomitant]
     Active Substance: ACETAMINOPHEN
     Indication: PAIN
     Dosage: UNK
     Route: 048
     Dates: start: 20141106, end: 20141127
  5. ORBENINE [Interacting]
     Active Substance: CLOXACILLIN SODIUM
     Indication: STAPHYLOCOCCAL SEPSIS
     Dosage: 3G/6H
     Route: 042
     Dates: start: 20141031, end: 20141102
  6. TAVANIC [Concomitant]
     Active Substance: LEVOFLOXACIN
     Indication: STAPHYLOCOCCAL SEPSIS
     Dosage: 50 MG, QD
     Dates: start: 20141031
  7. LANTUS [Interacting]
     Active Substance: INSULIN GLARGINE
     Indication: PRODUCT USED FOR UNKNOWN INDICATION
     Route: 058
     Dates: start: 20141115
  8. LERCANIDIPINE ACTAVIS [Concomitant]
     Indication: HYPERTENSION
     Dosage: UNK
     Route: 048
     Dates: start: 20141108
  9. ORBENINE [Interacting]
     Active Substance: CLOXACILLIN SODIUM
     Dosage: 12 G, QD
     Route: 042
     Dates: start: 20141106, end: 20141204
  10. LASILIX                            /00032601/ [Interacting]
     Active Substance: FUROSEMIDE
     Indication: OEDEMA PERIPHERAL
     Dosage: UNK
     Route: 048
  11. LASILIX                            /00032601/ [Interacting]
     Active Substance: FUROSEMIDE
     Indication: OEDEMA PERIPHERAL
     Dosage: UNK
     Route: 048
     Dates: start: 20141117

REACTIONS (2)
  - Hypokalaemia [Recovered/Resolved]
  - Drug interaction [Unknown]

NARRATIVE: CASE EVENT DATE: 20141109
